FAERS Safety Report 9608503 (Version 1)
Quarter: 2013Q4

REPORT INFORMATION
  Report Type: Spontaneous
  Country: US (occurrence: US)
  Receive Date: 20131009
  Receipt Date: 20131009
  Transmission Date: 20140711
  Serious: Yes (Hospitalization)
  Sender: FDA-Public Use
  Company Number: US-NOVOPROD-388921

PATIENT
  Age: 64 Year
  Sex: Female

DRUGS (1)
  1. NORDITROPIN FLEXPRO 6.7 MG/ML [Suspect]
     Indication: GROWTH HORMONE DEFICIENCY
     Dosage: 0.6 MG QD
     Route: 058

REACTIONS (2)
  - Cystitis [Recovered/Resolved]
  - Hypertension [Recovered/Resolved]
